FAERS Safety Report 6905382-4 (Version None)
Quarter: 2010Q3

REPORT INFORMATION
  Report Type: 
  Country: None (occurrence: None)
  Receive Date: 20100802
  Receipt Date: 20100716
  Transmission Date: 20110219
  Serious: Yes (Death)
  Sender: FDA-Public Use
  Company Number: 2010036322

PATIENT
  Sex: Female

DRUGS (1)
  1. FRAGMIN [Suspect]

REACTIONS (2)
  - INJECTION SITE HAEMATOMA [None]
  - NEEDLE ISSUE [None]
